FAERS Safety Report 10334095 (Version 1)
Quarter: 2014Q3

REPORT INFORMATION
  Report Type: Spontaneous
  Country: US (occurrence: None)
  Receive Date: 20140721
  Receipt Date: 20140721
  Transmission Date: 20150326
  Serious: Yes (Disabling, Other)
  Sender: FDA-Public Use
  Company Number: None

PATIENT
  Age: 38 Year
  Sex: Female
  Weight: 156.95 kg

DRUGS (1)
  1. CYMBALTA [Suspect]
     Active Substance: DULOXETINE HYDROCHLORIDE
     Indication: DEPRESSION
     Dosage: 1 ONCE DAILY TAKEN BY MOUTH
     Route: 048

REACTIONS (25)
  - Insomnia [None]
  - Dizziness [None]
  - Muscle twitching [None]
  - Headache [None]
  - Diarrhoea [None]
  - Weight increased [None]
  - Menorrhagia [None]
  - Dyspepsia [None]
  - Balance disorder [None]
  - Visual impairment [None]
  - Injury [None]
  - Arthralgia [None]
  - Tremor [None]
  - Hepatic enzyme increased [None]
  - Vision blurred [None]
  - Fall [None]
  - Impaired work ability [None]
  - Hypertension [None]
  - Mood swings [None]
  - Body temperature fluctuation [None]
  - Anxiety [None]
  - Nausea [None]
  - Paraesthesia [None]
  - Mental impairment [None]
  - Drug withdrawal syndrome [None]

NARRATIVE: CASE EVENT DATE: 20140428
